FAERS Safety Report 4974085-8 (Version None)
Quarter: 2006Q1

REPORT INFORMATION
  Report Type: 
  Country: None (occurrence: None)
  Receive Date: 20060215
  Receipt Date: 20051014
  Transmission Date: 20060701
  Serious: No
  Sender: FDA-Public Use
  Company Number: USA0610110927

PATIENT
  Age: 59 Year
  Sex: Male

DRUGS (3)
  1. CIALIS [Suspect]
     Indication: ERECTILE DYSFUNCTION
     Dosage: 20 MG, ORAL
     Route: 048
  2. METFORMIN [Concomitant]
  3. GLYBURIDE [Concomitant]

REACTIONS (2)
  - DRUG INEFFECTIVE [None]
  - THERAPEUTIC RESPONSE DECREASED [None]
